FAERS Safety Report 7949173-4 (Version None)
Quarter: 2011Q4

REPORT INFORMATION
  Report Type: 
  Country: None (occurrence: None)
  Receive Date: 20111125
  Receipt Date: 20111111
  Transmission Date: 20120403
  Serious: Yes (Hospitalization)
  Sender: FDA-Public Use
  Company Number: CIP11000546

PATIENT
  Age: 61 Year
  Sex: Female

DRUGS (2)
  1. ULTARM (TRAMADOL HYDROCHLORIDE) [Concomitant]
  2. ACTONEL [Suspect]
     Dosage: 5 MG, DAILY, ORAL
     Route: 048
     Dates: start: 20110125

REACTIONS (20)
  - ORAL PAIN [None]
  - ORAL PRURITUS [None]
  - DENTAL CARIES [None]
  - ABSCESS SOFT TISSUE [None]
  - PARAESTHESIA ORAL [None]
  - SWELLING FACE [None]
  - LOCAL SWELLING [None]
  - LIP PAIN [None]
  - TOOTH DISORDER [None]
  - DYSPHAGIA [None]
  - DROOLING [None]
  - LUDWIG ANGINA [None]
  - MUSCULOSKELETAL STIFFNESS [None]
  - BURNING SENSATION [None]
  - DEVICE BREAKAGE [None]
  - FACIAL PAIN [None]
  - HYPOAESTHESIA ORAL [None]
  - LOOSE TOOTH [None]
  - SENSORY DISTURBANCE [None]
  - GENERAL PHYSICAL HEALTH DETERIORATION [None]
